FAERS Safety Report 11846230 (Version 2)
Quarter: 2016Q1

REPORT INFORMATION
  Report Type: Spontaneous
  Country: AU (occurrence: AU)
  Receive Date: 20151217
  Receipt Date: 20160121
  Transmission Date: 20160526
  Serious: Yes (Other)
  Sender: FDA-Public Use
  Company Number: PHHY2015AU162836

PATIENT
  Age: 43 Year
  Sex: Female

DRUGS (1)
  1. SANDOSTATIN LAR DEPOT [Suspect]
     Active Substance: OCTREOTIDE ACETATE
     Indication: STOMA COMPLICATION
     Dosage: 20 MG
     Route: 065

REACTIONS (4)
  - Treatment failure [Unknown]
  - Product use issue [Unknown]
  - Injection site cellulitis [Unknown]
  - Injection site mass [Unknown]

NARRATIVE: CASE EVENT DATE: 20151126
